FAERS Safety Report 20888335 (Version 1)
Quarter: 2022Q2

REPORT INFORMATION
  Report Type: Spontaneous
  Country: US (occurrence: US)
  Receive Date: 20220529
  Receipt Date: 20220529
  Transmission Date: 20220721
  Serious: Yes (Other)
  Sender: FDA-Public Use
  Company Number: US-SA-SAC20220525000633

PATIENT
  Age: 62 Year

DRUGS (1)
  1. ZANTAC [Suspect]
     Active Substance: RANITIDINE HYDROCHLORIDE
     Indication: Gastrooesophageal reflux disease
     Dosage: UNK UNK, QD,UNKNOWN AT THIS TIME
     Route: 065
     Dates: start: 200001, end: 201801

REACTIONS (2)
  - Throat cancer [Unknown]
  - Nasal cavity cancer [Unknown]

NARRATIVE: CASE EVENT DATE: 20180101
